FAERS Safety Report 21156476 (Version 1)
Quarter: 2022Q3

REPORT INFORMATION
  Report Type: Spontaneous
  Country: IL (occurrence: None)
  Receive Date: 20220801
  Receipt Date: 20220801
  Transmission Date: 20221027
  Serious: Yes (Hospitalization, Other)
  Sender: FDA-Public Use
  Company Number: IL-ROCHE-3141538

PATIENT
  Age: 52 Year
  Sex: Male

DRUGS (7)
  1. XELODA [Suspect]
     Active Substance: CAPECITABINE
     Indication: Product used for unknown indication
     Route: 048
  2. GLUCOPHAGE [Concomitant]
     Active Substance: METFORMIN HYDROCHLORIDE
     Dosage: FOUR TABLETS IN THE MORNING AND THERE IN THE EVENING FOR TWO WEEKS AND THEN A WEEK WITHOUT.
  3. SETRON (ISRAEL) [Concomitant]
     Route: 048
  4. ZOFRAN [Concomitant]
     Active Substance: ONDANSETRON HYDROCHLORIDE
     Route: 048
  5. IMIPRAMINE [Concomitant]
     Active Substance: IMIPRAMINE
     Dosage: TAKE A TABLET A HALF AN HOUR BEFORE MEALS UP TO 3 TIMES A DAY
  6. IMODIUM [Concomitant]
     Active Substance: LOPERAMIDE HYDROCHLORIDE
     Dosage: BM TAKE 4 MG (2 CAPSULES) AND CONTINUE WITH 2 MG (1 CAPSULE) AFTER EACH WATERY STOOL, MAXIMUM OF 8 C
  7. OXALIPLATIN [Concomitant]
     Active Substance: OXALIPLATIN

REACTIONS (4)
  - Urinary tract infection [Unknown]
  - Nausea [Unknown]
  - Fatigue [Unknown]
  - Lung disorder [Unknown]

NARRATIVE: CASE EVENT DATE: 20210301
